FAERS Safety Report 8432172-6 (Version None)
Quarter: 2012Q2

REPORT INFORMATION
  Report Type: 
  Country: None (occurrence: None)
  Receive Date: 20120613
  Receipt Date: 20120606
  Transmission Date: 20120825
  Serious: Yes (Hospitalization, Other)
  Sender: FDA-Public Use
  Company Number: PHFR2010GB05196

PATIENT
  Sex: Female

DRUGS (10)
  1. CLOZARIL [Suspect]
     Indication: PARKINSON'S DISEASE
     Dosage: 50 MG, QD
     Route: 048
     Dates: start: 20080918, end: 20101102
  2. OMEPRAZOLE [Concomitant]
     Indication: GASTROOESOPHAGEAL REFLUX DISEASE
     Dosage: 40 MG DAILY
     Route: 048
  3. CLOZARIL [Suspect]
     Dosage: 25 MG DAILY
     Route: 048
     Dates: start: 20101108
  4. ROTIGOTINE [Concomitant]
     Indication: PARKINSON'S DISEASE
     Dosage: 16 MG DAILY
  5. WARFARIN SODIUM [Concomitant]
  6. DIAZEPAM [Concomitant]
     Indication: ANXIETY
     Dosage: 7 MG DAILY
     Route: 048
  7. STALEVO 100 [Concomitant]
     Indication: PARKINSON'S DISEASE
     Dosage: 6 DF, DAILY
     Route: 048
  8. TRAZODONE HCL [Concomitant]
     Indication: DEPRESSION
     Dosage: 50 MG DAILY
     Route: 048
  9. FUROSEMIDE [Concomitant]
     Indication: OEDEMA
     Dosage: 20 MG DAILY
     Route: 048
  10. DOMPERIDONE [Concomitant]
     Indication: NAUSEA
     Dosage: 40 MG DAILY
     Route: 048

REACTIONS (7)
  - FALL [None]
  - LYMPHOCYTE COUNT DECREASED [None]
  - LEUKOPENIA [None]
  - URINARY TRACT INFECTION [None]
  - HUMERUS FRACTURE [None]
  - LYMPHOPENIA [None]
  - NEUTROPHIL COUNT DECREASED [None]
